FAERS Safety Report 6558157-2 (Version None)
Quarter: 2010Q1

REPORT INFORMATION
  Report Type: 
  Country: None (occurrence: None)
  Receive Date: 20100129
  Receipt Date: 20100120
  Transmission Date: 20100710
  Serious: Yes (Other)
  Sender: FDA-Public Use
  Company Number: A0841924A

PATIENT
  Sex: Female

DRUGS (1)
  1. NICODERM [Suspect]
     Indication: SMOKING CESSATION THERAPY
     Dosage: 21MG PER DAY
     Route: 062

REACTIONS (4)
  - ASTHENIA [None]
  - INSOMNIA [None]
  - POOR QUALITY SLEEP [None]
  - SUICIDAL IDEATION [None]
